FAERS Safety Report 18204833 (Version 1)
Quarter: 2020Q3

REPORT INFORMATION
  Report Type: Spontaneous
  Country: IN (occurrence: IN)
  Receive Date: 20200828
  Receipt Date: 20200828
  Transmission Date: 20201103
  Serious: Yes (Hospitalization, Other)
  Sender: FDA-Public Use
  Company Number: IN-VISTAPHARM, INC.-VER202008-001450

PATIENT
  Age: 66 Year
  Sex: Female

DRUGS (2)
  1. HYDROCODONE AND ACETAMINOPHEN [Suspect]
     Active Substance: ACETAMINOPHEN\HYDROCODONE
     Indication: CELLULITIS
     Dosage: 3 G/DAY
  2. FLUCLOXACILLIN [Suspect]
     Active Substance: FLUCLOXACILLIN
     Indication: CELLULITIS
     Dosage: 6 G/DAY

REACTIONS (1)
  - Metabolic acidosis [Recovered/Resolved]
